FAERS Safety Report 8602415 (Version 4)
Quarter: 2014Q1

REPORT INFORMATION
  Report Type: Spontaneous
  Country: US (occurrence: US)
  Receive Date: 20120607
  Receipt Date: 20140131
  Transmission Date: 20141002
  Serious: Yes (Hospitalization, Disabling, Other)
  Sender: FDA-Public Use
  Company Number: US-ASTRAZENECA-2012SE34744

PATIENT
  Age: 69 Year
  Sex: Male
  Weight: 122.5 kg

DRUGS (30)
  1. NEXIUM [Suspect]
     Indication: GASTROOESOPHAGEAL REFLUX DISEASE
     Route: 048
     Dates: start: 20020212
  2. NEXIUM [Suspect]
     Indication: GASTROOESOPHAGEAL REFLUX DISEASE
     Route: 048
     Dates: start: 20080227
  3. NEXIUM [Suspect]
     Indication: GASTROOESOPHAGEAL REFLUX DISEASE
     Route: 048
     Dates: start: 2003
  4. ZANTAC [Concomitant]
  5. TAGAMET [Concomitant]
  6. PEPCID [Concomitant]
  7. PREVACID [Concomitant]
  8. ROLAIDS [Concomitant]
  9. ALKA-SELTZER [Concomitant]
  10. MYLANTA [Concomitant]
  11. TUMS [Concomitant]
  12. MILK OF MAGNESIA [Concomitant]
  13. GAVISCON [Concomitant]
  14. PEPTO-BISMOL [Concomitant]
  15. CELEBREX [Concomitant]
     Dosage: DAILY
     Dates: end: 20030114
  16. CELEBREX [Concomitant]
     Dosage: TWO TIMES A DAY
     Dates: start: 20030114
  17. CELEBREX [Concomitant]
     Route: 048
     Dates: start: 20110328
  18. DIOVAN [Concomitant]
     Dates: start: 20030114
  19. SODIUM BICARBONATE [Concomitant]
     Dates: start: 20110225
  20. LORTAB [Concomitant]
     Indication: PAIN
     Dosage: 5 MG TO 500 MG
     Dates: start: 20110225
  21. LORTAB [Concomitant]
     Indication: PAIN
     Dosage: 7.5 TO 500 MG EVERY 12 HOURS
     Route: 048
     Dates: start: 20110328
  22. AMLODIPINE BESYLATE-BENZEPRIL [Concomitant]
     Dosage: 10 MG -20 MG
     Dates: start: 20110225
  23. LASIX [Concomitant]
     Dates: start: 20110225
  24. METOPROLOL TARTRATE [Concomitant]
     Dates: start: 20110225
  25. VITAMIN D [Concomitant]
     Dosage: 50000 UNIT, WEEKLY
     Dates: start: 20110225
  26. ONGLYZA [Concomitant]
     Dates: start: 20110225
  27. OMEPRAZOLE [Concomitant]
     Dates: start: 20110225
  28. VYTORIN [Concomitant]
     Dosage: 10 MG TO 80 MG
     Dates: start: 20110225
  29. LUPRON [Concomitant]
  30. COUMADIN [Concomitant]

REACTIONS (9)
  - Prostate cancer [Unknown]
  - Osteoarthritis [Unknown]
  - Deep vein thrombosis [Unknown]
  - Osteoporosis [Unknown]
  - Multiple fractures [Unknown]
  - Diabetes mellitus [Unknown]
  - Arthritis [Unknown]
  - Intervertebral disc degeneration [Unknown]
  - Arthralgia [Unknown]
